FAERS Safety Report 7861625-4 (Version None)
Quarter: 2011Q4

REPORT INFORMATION
  Report Type: 
  Country: None (occurrence: None)
  Receive Date: 20111027
  Receipt Date: 20111024
  Transmission Date: 20120403
  Serious: Yes (Other)
  Sender: FDA-Public Use
  Company Number: BR-ROCHE-1006847

PATIENT
  Sex: Male
  Weight: 63 kg

DRUGS (1)
  1. ISOTRETINOIN [Suspect]
     Indication: ACNE
     Route: 048
     Dates: start: 20100501, end: 20100801

REACTIONS (4)
  - EYE MOVEMENT DISORDER [None]
  - HALLUCINATION [None]
  - NASOPHARYNGITIS [None]
  - HEADACHE [None]
